FAERS Safety Report 23626906 (Version 1)
Quarter: 2024Q1

REPORT INFORMATION
  Report Type: Spontaneous
  Country: FR (occurrence: FR)
  Receive Date: 20240313
  Receipt Date: 20240313
  Transmission Date: 20240410
  Serious: Yes (Death)
  Sender: FDA-Public Use
  Company Number: None

PATIENT
  Age: 70 Year
  Sex: Female

DRUGS (3)
  1. IBRANCE [Suspect]
     Active Substance: PALBOCICLIB
     Indication: Breast cancer metastatic
     Dosage: 125 MG, DAILY FOR 3 CONSECUTIVE WEEKS
     Route: 048
     Dates: start: 20230712, end: 202401
  2. EXEMESTANE [Suspect]
     Active Substance: EXEMESTANE
     Indication: Breast cancer metastatic
     Dosage: 25 MG
     Route: 048
     Dates: start: 20230525
  3. XGEVA [Suspect]
     Active Substance: DENOSUMAB
     Indication: Breast cancer metastatic
     Dosage: 120 MG, MONTHLY
     Route: 058
     Dates: start: 20230525

REACTIONS (2)
  - Interstitial lung disease [Fatal]
  - Condition aggravated [Fatal]

NARRATIVE: CASE EVENT DATE: 20240105
